FAERS Safety Report 5076549-8 (Version None)
Quarter: 2006Q3

REPORT INFORMATION
  Report Type: 
  Country: None (occurrence: None)
  Receive Date: 20060810
  Receipt Date: 20060717
  Transmission Date: 20061208
  Serious: Yes (Hospitalization)
  Sender: FDA-Public Use
  Company Number: US-AMGEN-US186529

PATIENT
  Sex: Female
  Weight: 72.5 kg

DRUGS (1)
  1. ENBREL [Suspect]
     Indication: LUNG DISORDER

REACTIONS (2)
  - BK VIRUS INFECTION [None]
  - CYSTITIS HAEMORRHAGIC [None]
